FAERS Safety Report 24659052 (Version 1)
Quarter: 2024Q4

REPORT INFORMATION
  Report Type: Spontaneous
  Country: US (occurrence: None)
  Receive Date: 20241125
  Receipt Date: 20241125
  Transmission Date: 20250115
  Serious: No
  Sender: Public
  Company Number: None

PATIENT
  Age: 87 Year
  Sex: Female

DRUGS (11)
  1. NUCALA [Suspect]
     Active Substance: MEPOLIZUMAB
     Indication: Asthma
     Dosage: 100MG ONCE MONTHLY SUBCUTANEOUS?
     Route: 058
     Dates: start: 20220526
  2. PREDNISONE [Concomitant]
     Active Substance: PREDNISONE
  3. SPIRONOLACTONE [Concomitant]
     Active Substance: SPIRONOLACTONE
  4. TORSEMIDE [Concomitant]
     Active Substance: TORSEMIDE
  5. CARVEDILOL [Concomitant]
     Active Substance: CARVEDILOL
  6. ALBUTEROL [Concomitant]
     Active Substance: ALBUTEROL
  7. ELIQUIS [Concomitant]
     Active Substance: APIXABAN
  8. MONTELUKAST [Concomitant]
     Active Substance: MONTELUKAST
  9. THEOPHYLLINE [Concomitant]
     Active Substance: THEOPHYLLINE
  10. TRELEGY ELLIPTA [Concomitant]
     Active Substance: FLUTICASONE FUROATE\UMECLIDINIUM BROMIDE\VILANTEROL TRIFENATATE
  11. VERAPAMIL [Concomitant]
     Active Substance: VERAPAMIL HYDROCHLORIDE

REACTIONS (1)
  - Pleural effusion [None]

NARRATIVE: CASE EVENT DATE: 20241111
